FAERS Safety Report 13918129 (Version 1)
Quarter: 2017Q3

REPORT INFORMATION
  Report Type: Spontaneous
  Country: AT (occurrence: AT)
  Receive Date: 20170829
  Receipt Date: 20170829
  Transmission Date: 20171127
  Serious: Yes (Other)
  Sender: FDA-Public Use
  Company Number: AT-PFIZER INC-2017368006

PATIENT
  Age: 56 Year
  Sex: Male

DRUGS (3)
  1. XGEVA [Concomitant]
     Active Substance: DENOSUMAB
     Dosage: 120 MG, UNK
  2. CAL D VITA [Concomitant]
     Dosage: EVERY FOUR WEEKS
  3. SUTENT [Suspect]
     Active Substance: SUNITINIB MALATE
     Indication: METASTATIC RENAL CELL CARCINOMA
     Dosage: 50 MG, CYCLIC (TWO WEEKS TREATMENT, ONE WEEK REST)
     Dates: start: 20160324, end: 2016

REACTIONS (4)
  - Blood pressure increased [Unknown]
  - Alcohol poisoning [Unknown]
  - Neoplasm progression [Unknown]
  - Muscular weakness [Recovering/Resolving]

NARRATIVE: CASE EVENT DATE: 20160428
